FAERS Safety Report 22122065 (Version 2)
Quarter: 2023Q2

REPORT INFORMATION
  Report Type: Spontaneous
  Country: UA (occurrence: UA)
  Receive Date: 20230321
  Receipt Date: 20230421
  Transmission Date: 20230721
  Serious: Yes (Death, Other)
  Sender: FDA-Public Use
  Company Number: UA-MYLANLABS-2023M1027063

PATIENT
  Age: 73 Year
  Sex: Male

DRUGS (10)
  1. PREGABALIN [Suspect]
     Active Substance: PREGABALIN
     Indication: Polyneuropathy
     Dosage: 300 MILLIGRAM, QD
     Route: 065
     Dates: start: 202007
  2. PREGABALIN [Suspect]
     Active Substance: PREGABALIN
     Dosage: 300 MILLIGRAM, QD
     Route: 065
     Dates: start: 202008, end: 202010
  3. AMITRIPTYLINE [Concomitant]
     Active Substance: AMITRIPTYLINE
     Indication: Polyneuropathy
     Dosage: UNK
     Route: 065
  4. SULPIRIDE [Concomitant]
     Active Substance: SULPIRIDE
     Indication: Polyneuropathy
     Dosage: UNK
     Route: 065
  5. Ethylmethylhydroxypyridine succinate [Concomitant]
     Indication: Polyneuropathy
     Dosage: UNK
     Route: 065
  6. IPIDACRINE HYDROCHLORIDE [Concomitant]
     Indication: Polyneuropathy
     Dosage: UNK
     Route: 065
  7. ALPHA LIPOIC ACID [Concomitant]
     Active Substance: .ALPHA.-LIPOIC ACID
     Indication: Polyneuropathy
     Dosage: UNK
     Route: 065
  8. BUDESONIDE\FORMOTEROL [Concomitant]
     Active Substance: BUDESONIDE\FORMOTEROL
     Indication: Pulmonary fibrosis
     Dosage: UNK
     Route: 065
  9. AMBROXOL [Concomitant]
     Active Substance: AMBROXOL
     Indication: Pulmonary fibrosis
     Dosage: UNK
     Route: 065
  10. ALBUTEROL [Concomitant]
     Active Substance: ALBUTEROL
     Indication: Pulmonary fibrosis
     Dosage: UNK
     Route: 065

REACTIONS (5)
  - Crohn^s disease [Fatal]
  - Mesenteric vein thrombosis [Unknown]
  - Body temperature increased [Recovered/Resolved]
  - Mouth ulceration [Recovering/Resolving]
  - Rash [Recovering/Resolving]
